FAERS Safety Report 10272030 (Version 2)
Quarter: 2014Q3

REPORT INFORMATION
  Report Type: Spontaneous
  Country: VE (occurrence: VE)
  Receive Date: 20140702
  Receipt Date: 20140803
  Transmission Date: 20150326
  Serious: Yes (Hospitalization, Other)
  Sender: FDA-Public Use
  Company Number: PHHY2014VE080937

PATIENT
  Age: 83 Year
  Sex: Male

DRUGS (2)
  1. CARBAMAZEPINE. [Suspect]
     Active Substance: CARBAMAZEPINE
     Indication: CONVULSION
     Dosage: UNK UKN, UNK
  2. TEGRETOL-XR [Suspect]
     Active Substance: CARBAMAZEPINE
     Indication: CONVULSION
     Dosage: 800 MG, DAILY
     Route: 048
     Dates: start: 1984, end: 201403

REACTIONS (3)
  - Urinary tract obstruction [Recovered/Resolved]
  - Convulsion [Recovered/Resolved]
  - Benign prostatic hyperplasia [Recovering/Resolving]

NARRATIVE: CASE EVENT DATE: 2014
